FAERS Safety Report 4615601-5 (Version None)
Quarter: 2005Q1

REPORT INFORMATION
  Report Type: 
  Country: None (occurrence: None)
  Receive Date: 20050317
  Receipt Date: 20050304
  Transmission Date: 20050727
  Serious: Yes (Other)
  Sender: FDA-Public Use
  Company Number: 2005007880

PATIENT
  Sex: Female
  Weight: 90.7194 kg

DRUGS (11)
  1. ZOLOFT [Suspect]
     Indication: SOCIAL PHOBIA
     Dosage: 25 MG (25 MG, 1 IN 1 D), ORAL
     Route: 048
     Dates: start: 20031001, end: 20041201
  2. ATENOLOL [Concomitant]
  3. FEXOFENADINE HYDROCHLORIDE [Concomitant]
  4. POTASSIUM ACETATE [Concomitant]
  5. CHLOROTHIAZIDE [Concomitant]
  6. EZETIMIBE (EZETIMIBE) [Concomitant]
  7. FENOFIBRATE [Concomitant]
  8. ISOSORBIDE MONONITRATE [Concomitant]
  9. ASPIRIN [Concomitant]
  10. VITAMINS (VITAMINS) [Concomitant]
  11. LOVASTATIN [Concomitant]

REACTIONS (9)
  - CHEST PAIN [None]
  - DEATH OF CHILD [None]
  - DEPRESSION [None]
  - DIZZINESS [None]
  - DRUG DEPENDENCE [None]
  - FEELING JITTERY [None]
  - NERVOUSNESS [None]
  - PARAESTHESIA [None]
  - VASCULAR OCCLUSION [None]
